FAERS Safety Report 8584879-8 (Version None)
Quarter: 2012Q3

REPORT INFORMATION
  Report Type: 
  Country: None (occurrence: None)
  Receive Date: 20120810
  Receipt Date: 20120727
  Transmission Date: 20120928
  Serious: Yes (Hospitalization)
  Sender: FDA-Public Use
  Company Number: US-ELI_LILLY_AND_COMPANY-US201205003972

PATIENT
  Sex: Female

DRUGS (3)
  1. ZYPREXA [Suspect]
     Dosage: 2.5 MG, EACH EVENING
  2. LITHIUM CARBONATE [Concomitant]
     Dosage: 300 MG, BID
  3. LITHIUM CARBONATE [Concomitant]
     Dosage: 1800 MG, QD

REACTIONS (2)
  - TOXICITY TO VARIOUS AGENTS [None]
  - BIPOLAR DISORDER [None]
